FAERS Safety Report 5775812-2 (Version None)
Quarter: 2008Q2

REPORT INFORMATION
  Report Type: 
  Country: None (occurrence: None)
  Receive Date: 20080617
  Receipt Date: 20080527
  Transmission Date: 20081010
  Serious: No
  Sender: FDA-Public Use
  Company Number: US-BOEHRINGER INGELHEIM GMBH, GERMANY-2008-BP-08321BP

PATIENT
  Age: 75 Year
  Sex: Male

DRUGS (1)
  1. ZANTAC 150 [Suspect]
     Indication: FLATULENCE
     Route: 048
     Dates: start: 20080524

REACTIONS (3)
  - ERUCTATION [None]
  - FLATULENCE [None]
  - INSOMNIA [None]
